FAERS Safety Report 25119726 (Version 5)
Quarter: 2025Q3

REPORT INFORMATION
  Report Type: Spontaneous
  Country: EU (occurrence: EU)
  Receive Date: 20250325
  Receipt Date: 20250716
  Transmission Date: 20251021
  Serious: Yes (Hospitalization, Other)
  Sender: ALEXION PHARMACEUTICALS
  Company Number: EU-SA-2025SA081593

PATIENT
  Age: 5 Month
  Sex: Male
  Weight: 3.16 kg

DRUGS (6)
  1. BEYFORTUS [Suspect]
     Active Substance: NIRSEVIMAB-ALIP
     Dates: start: 20241126, end: 20241126
  2. BEYFORTUS [Suspect]
     Active Substance: NIRSEVIMAB-ALIP
  3. Vigantol [Concomitant]
     Indication: Supplementation therapy
     Dosage: 1 DROP/DAY (667 IU/DAY)
     Route: 065
  4. ALBUTEROL SULFATE\IPRATROPIUM BROMIDE [Concomitant]
     Active Substance: ALBUTEROL SULFATE\IPRATROPIUM BROMIDE
  5. AMOXICILLIN\CLAVULANIC ACID [Concomitant]
     Active Substance: AMOXICILLIN\CLAVULANIC ACID
     Dosage: 50 MG/KG, Q8H
  6. DEFLAZACORT [Concomitant]
     Active Substance: DEFLAZACORT

REACTIONS (23)
  - Metapneumovirus bronchiolitis [Unknown]
  - Superinfection bacterial [Recovered/Resolved]
  - Bronchitis [Unknown]
  - Respiratory syncytial virus bronchiolitis [Recovered/Resolved]
  - Fatigue [Unknown]
  - Cough [Unknown]
  - Use of accessory respiratory muscles [Unknown]
  - Peripheral coldness [Unknown]
  - Neonatal respiratory distress syndrome [Unknown]
  - Hypoxia [Unknown]
  - Tachypnoea [Unknown]
  - Wheezing [Unknown]
  - Nasal obstruction [Unknown]
  - Dyspnoea [Unknown]
  - Viral infection [Unknown]
  - Metapneumovirus infection [Unknown]
  - Dyspnoea [Unknown]
  - Bronchiolitis [Unknown]
  - Food refusal [Unknown]
  - Tremor [Unknown]
  - Pyrexia [Unknown]
  - Respiratory syncytial virus infection [Not Recovered/Not Resolved]
  - Drug ineffective [Recovered/Resolved]

NARRATIVE: CASE EVENT DATE: 20250101
